FAERS Safety Report 18265023 (Version 1)
Quarter: 2020Q3

REPORT INFORMATION
  Report Type: Spontaneous
  Country: DE (occurrence: DE)
  Receive Date: 20200915
  Receipt Date: 20200915
  Transmission Date: 20201103
  Serious: Yes (Disabling)
  Sender: FDA-Public Use
  Company Number: DE-SUN PHARMACEUTICAL INDUSTRIES LTD-2020RR-260733

PATIENT
  Age: 59 Year
  Sex: Female

DRUGS (5)
  1. L?THYROXIN 75 [Concomitant]
     Active Substance: LEVOTHYROXINE
     Indication: GOITRE
     Dosage: 75 MICROGRAM, UNK
     Route: 048
     Dates: start: 2018
  2. RAMIPRIL. [Concomitant]
     Active Substance: RAMIPRIL
     Indication: HYPERTENSION
     Dosage: 5 MILLIGRAM, UNK
     Route: 048
     Dates: start: 2018
  3. PREDNISOLON [Concomitant]
     Active Substance: PREDNISOLONE
     Indication: RHEUMATOID ARTHRITIS
     Dosage: 5 MILLIGRAM, UNK
     Route: 048
     Dates: start: 2008
  4. OLUMIANT [Suspect]
     Active Substance: BARICITINIB
     Indication: RHEUMATOID ARTHRITIS
     Dosage: 2 MILLIGRAM, UNK
     Route: 048
     Dates: start: 202003
  5. ALENDRONIC ACID [Suspect]
     Active Substance: ALENDRONIC ACID
     Indication: OSTEOPOROSIS
     Dosage: 70 MILLIGRAM, WEEKLY
     Route: 048
     Dates: start: 202002, end: 202007

REACTIONS (2)
  - Tooth loss [Unknown]
  - Tooth dislocation [Unknown]

NARRATIVE: CASE EVENT DATE: 202006
